FAERS Safety Report 18506770 (Version 1)
Quarter: 2020Q4

REPORT INFORMATION
  Report Type: Spontaneous
  Country: CA (occurrence: CA)
  Receive Date: 20201116
  Receipt Date: 20201116
  Transmission Date: 20210114
  Serious: Yes (Other)
  Sender: FDA-Public Use
  Company Number: CA-PFIZER INC-2017146654

PATIENT
  Age: 41 Year
  Sex: Male

DRUGS (9)
  1. SOMAVERT [Suspect]
     Active Substance: PEGVISOMANT
     Dosage: 20 MG, 1X/DAY
     Route: 058
     Dates: start: 2018, end: 2019
  2. SYNTHROID [Concomitant]
     Active Substance: LEVOTHYROXINE SODIUM
     Dosage: 112 UG, DAILY
     Dates: start: 201808
  3. SOMAVERT [Suspect]
     Active Substance: PEGVISOMANT
     Dosage: 25 MG, 1X/DAY
     Route: 058
     Dates: start: 2019
  4. COVERSYL [PERINDOPRIL ERBUMINE] [Concomitant]
     Active Substance: PERINDOPRIL ERBUMINE
     Dosage: 8 MG, 1X/DAY
  5. NORVASC [Suspect]
     Active Substance: AMLODIPINE BESYLATE
     Dosage: 5 MG, 1X/DAY
  6. PREGNYL [Concomitant]
     Active Substance: CHORIOGONADOTROPIN ALFA
     Dosage: 2000 IU, ALTERNATE DAY (EVERY 2 DAYS)
     Route: 058
  7. SOMAVERT [Suspect]
     Active Substance: PEGVISOMANT
     Indication: ACROMEGALY
     Dosage: 20 MG, 1X/DAY
     Route: 058
     Dates: start: 20170330, end: 20181108
  8. SANDOSTATIN [Concomitant]
     Active Substance: OCTREOTIDE ACETATE
     Dosage: 20 MG, MONTHLY
     Dates: start: 201601
  9. REPRONEX [Concomitant]
     Active Substance: FOLLITROPIN\LUTEINIZING HORMONE
     Dosage: 75 UI 3 TIMES PER WEEK

REACTIONS (2)
  - Insulin-like growth factor increased [Unknown]
  - Hypertension [Recovered/Resolved]
